FAERS Safety Report 8059469-6 (Version None)
Quarter: 2012Q1

REPORT INFORMATION
  Report Type: 
  Country: None (occurrence: None)
  Receive Date: 20120120
  Receipt Date: 20120117
  Transmission Date: 20120608
  Serious: Yes (Death)
  Sender: FDA-Public Use
  Company Number: TN-SANOFI-AVENTIS-2012SA001780

PATIENT
  Age: 60 Year
  Sex: Male

DRUGS (9)
  1. PLAVIX [Suspect]
     Route: 048
     Dates: start: 20111103, end: 20111207
  2. ATORVASTATIN [Concomitant]
     Route: 048
     Dates: end: 20111207
  3. BISOPROLOL [Concomitant]
     Route: 048
     Dates: end: 20111207
  4. GLYBURIDE [Concomitant]
     Route: 048
     Dates: end: 20111207
  5. PLAVIX [Suspect]
     Route: 048
     Dates: start: 20111103, end: 20111207
  6. ALDACTONE [Concomitant]
     Route: 048
     Dates: end: 20111207
  7. ASPIRIN [Concomitant]
     Route: 048
     Dates: end: 20111207
  8. LASIX [Concomitant]
     Route: 048
     Dates: end: 20111207
  9. PERINDOPRIL [Concomitant]
     Route: 048
     Dates: end: 20111207

REACTIONS (2)
  - NEUROLOGICAL SYMPTOM [None]
  - BRAIN NEOPLASM MALIGNANT [None]
